FAERS Safety Report 15528178 (Version 1)
Quarter: 2018Q4

REPORT INFORMATION
  Report Type: Report from Study
  Country: US (occurrence: US)
  Receive Date: 20181018
  Receipt Date: 20181018
  Transmission Date: 20190205
  Serious: No
  Sender: FDA-Public Use
  Company Number: US-AMGEN-USASL2018137227

PATIENT
  Age: 71 Year
  Sex: Female

DRUGS (1)
  1. REPATHA [Suspect]
     Active Substance: EVOLOCUMAB
     Indication: HYPERCHOLESTEROLAEMIA
     Dosage: 140 MG, Q2WK, EVERY OTHER MONTH
     Route: 065

REACTIONS (4)
  - Injection site pain [Unknown]
  - Intentional product misuse [Unknown]
  - Injection site discomfort [Unknown]
  - Wrong technique in product usage process [Unknown]
